FAERS Safety Report 7685047-4 (Version None)
Quarter: 2011Q3

REPORT INFORMATION
  Report Type: 
  Country: None (occurrence: None)
  Receive Date: 20110811
  Receipt Date: 20110719
  Transmission Date: 20111222
  Serious: Yes (Hospitalization)
  Sender: FDA-Public Use
  Company Number: 2011PROUSA00437

PATIENT
  Age: 71 Year
  Sex: Male
  Weight: 103 kg

DRUGS (9)
  1. PROVENGE [Suspect]
     Indication: PROSTATE CANCER METASTATIC
     Dosage: 250 ML, SINGLE, INTRAVENOUS
     Route: 042
     Dates: start: 20110609, end: 20110609
  2. ZOMETA [Concomitant]
  3. PRILOSEC [Concomitant]
  4. PREDNISOLON (PREDNISOLON) [Concomitant]
  5. ELIGARD [Concomitant]
  6. SELENIUM (SELENIUM) [Concomitant]
  7. VITAMIN B12 [Concomitant]
  8. SOTALOL HCL [Concomitant]
  9. E-VITAMIN (TOCOPHERYL ACETATE) [Concomitant]

REACTIONS (4)
  - CORONARY ARTERY OCCLUSION [None]
  - COUGH [None]
  - MYOCARDIAL INFARCTION [None]
  - CONSTIPATION [None]
